FAERS Safety Report 19373811 (Version 1)
Quarter: 2021Q2

REPORT INFORMATION
  Report Type: Spontaneous
  Country: US (occurrence: US)
  Receive Date: 20210603
  Receipt Date: 20210603
  Transmission Date: 20210717
  Serious: Yes (Life-Threatening, Hospitalization)
  Sender: FDA-Public Use
  Company Number: US-MYLANLABS-2021M1032206

PATIENT
  Age: 15 Year
  Sex: Female
  Weight: 53.1 kg

DRUGS (2)
  1. LORAZEPAM. [Suspect]
     Active Substance: LORAZEPAM
     Indication: TOXICITY TO VARIOUS AGENTS
     Dosage: 7 MILLIGRAM, BID
     Route: 065
  2. DIPHENHYDRAMINE. [Suspect]
     Active Substance: DIPHENHYDRAMINE
     Indication: PRODUCT USED FOR UNKNOWN INDICATION
     Dosage: 1250?2500 MG
     Route: 065

REACTIONS (11)
  - Disorientation [Recovered/Resolved]
  - Mydriasis [Unknown]
  - Hallucination [Unknown]
  - Agitation [Recovered/Resolved]
  - Drug ineffective [Unknown]
  - Toxicity to various agents [Recovering/Resolving]
  - Hypertension [Unknown]
  - Tachycardia [Unknown]
  - Electrocardiogram QT prolonged [Recovered/Resolved]
  - Mucosal dryness [Unknown]
  - Somnolence [Not Recovered/Not Resolved]
